FAERS Safety Report 14254129 (Version 2)
Quarter: 2017Q4

REPORT INFORMATION
  Report Type: Spontaneous
  Country: KR (occurrence: KR)
  Receive Date: 20171205
  Receipt Date: 20171213
  Transmission Date: 20180321
  Serious: Yes (Other)
  Sender: FDA-Public Use
  Company Number: KR-PFIZER INC-2017512070

PATIENT
  Age: 45 Year
  Sex: Female
  Weight: 45.6 kg

DRUGS (25)
  1. NOREPINEPHRINE BITARTRATE. [Suspect]
     Active Substance: NOREPINEPHRINE BITARTRATE
     Dosage: 0.1 UG/ KG/MIN
     Route: 042
  2. VASOPRESSIN. [Suspect]
     Active Substance: VASOPRESSIN
     Dosage: 0.05 UNITS/ MIN
  3. REMIFENTANIL [Concomitant]
     Active Substance: REMIFENTANIL
     Indication: SEDATION
     Dosage: 0.03 UG/KG/MIN
  4. ATROPINE. [Concomitant]
     Active Substance: ATROPINE
     Dosage: 1 MG, UNK
  5. SODIUM BICARBONATE. [Concomitant]
     Active Substance: SODIUM BICARBONATE
     Dosage: 80 MEQ/L, UNK
  6. CALCIUM CHLORIDE. [Concomitant]
     Active Substance: CALCIUM CHLORIDE
     Dosage: 300 MG, UNK
  7. NOREPINEPHRINE BITARTRATE. [Suspect]
     Active Substance: NOREPINEPHRINE BITARTRATE
     Indication: MEAN ARTERIAL PRESSURE
     Dosage: 0.03 UG/KG/MIN
     Route: 042
  8. SALINE [Concomitant]
     Active Substance: SODIUM CHLORIDE
     Dosage: 1 L, UNK (HALF SALINE MIXED WITH 80 MEQ/L SODIUM BICARBONATE)
  9. DEXTROSE. [Concomitant]
     Active Substance: DEXTROSE
     Dosage: 200 ML, UNK (INFUSION)
  10. OXYGEN. [Concomitant]
     Active Substance: OXYGEN
     Dosage: UNK
  11. EPINEPHRINE. [Suspect]
     Active Substance: EPINEPHRINE
     Dosage: 0.05 UG/KG/MIN
     Route: 042
  12. MIDAZOLAM [Concomitant]
     Active Substance: MIDAZOLAM HYDROCHLORIDE
     Indication: GENERAL ANAESTHESIA
     Dosage: 2 MG, UNK
  13. INSULIN [Concomitant]
     Active Substance: INSULIN NOS
     Dosage: 10 IU, UNK
     Route: 040
  14. NOREPINEPHRINE BITARTRATE. [Suspect]
     Active Substance: NOREPINEPHRINE BITARTRATE
     Dosage: 0.05 UG/KG/MIN
     Route: 042
  15. DOBUTAMINE [Suspect]
     Active Substance: DOBUTAMINE\DOBUTAMINE HYDROCHLORIDE
     Dosage: 5 UG/KG/MIN
     Route: 042
  16. CALCIUM CHLORIDE. [Concomitant]
     Active Substance: CALCIUM CHLORIDE
     Dosage: 600 MG, UNK
  17. DESFLURANE. [Concomitant]
     Active Substance: DESFLURANE
     Indication: GENERAL ANAESTHESIA
     Dosage: UNK
  18. PROTAMINE SULFATE. [Concomitant]
     Active Substance: PROTAMINE SULFATE
     Indication: HEPARIN NEUTRALISATION THERAPY
     Dosage: 100 MG, UNK
  19. PROTAMINE SULFATE. [Concomitant]
     Active Substance: PROTAMINE SULFATE
     Indication: COAGULATION TIME PROLONGED
     Dosage: BOLUS
  20. ETOMIDATE. [Concomitant]
     Active Substance: ETOMIDATE
     Indication: GENERAL ANAESTHESIA
     Dosage: 8 MG, UNK
  21. ATRACURIUM [Concomitant]
     Active Substance: ATRACURIUM
     Indication: GENERAL ANAESTHESIA
     Dosage: 50 MG, UNK
  22. HEPARIN [Concomitant]
     Active Substance: HEPARIN SODIUM
     Dosage: UNK
  23. TRANEXAMIC ACID. [Concomitant]
     Active Substance: TRANEXAMIC ACID
     Dosage: 500 MG, UNK
  24. HEPARIN [Concomitant]
     Active Substance: HEPARIN SODIUM
     Dosage: 100 MG, UNK
     Route: 042
  25. BICARBONATE [Concomitant]
     Active Substance: BICARBONATE ION
     Dosage: 20 MEQ, UNK

REACTIONS (1)
  - Peripheral ischaemia [Recovering/Resolving]
